FAERS Safety Report 12983703 (Version 2)
Quarter: 2017Q3

REPORT INFORMATION
  Report Type: Report from Study
  Country: None (occurrence: BR)
  Receive Date: 20161129
  Receipt Date: 20170817
  Transmission Date: 20171127
  Serious: Yes (Other)
  Sender: FDA-Public Use
  Company Number: BR-ABBVIE-16P-020-1794149-00

PATIENT
  Age: 78 Year
  Sex: Female
  Weight: 52.5 kg

DRUGS (7)
  1. SYNTHROID [Suspect]
     Active Substance: LEVOTHYROXINE SODIUM
     Indication: HYPOTHYROIDISM
     Dosage: DAILY DOSE: 1 TABLET; MORNING (30 MINUTES FASTING) 50MCG
     Route: 048
     Dates: start: 2012
  2. VASLIP [Concomitant]
     Indication: THYROID DISORDER
     Dosage: AT NIGHT
     Dates: start: 2012
  3. VERTIGOHEEL [Concomitant]
     Active Substance: HOMEOPATHICS
     Indication: LABYRINTHITIS
  4. OMEPRAZOLE. [Concomitant]
     Active Substance: OMEPRAZOLE
     Indication: GASTRIC DISORDER
     Dosage: WHEN STOMACH ATTACKS
  5. LEXOTAN [Concomitant]
     Active Substance: BROMAZEPAM
     Indication: SLEEP DISORDER THERAPY
     Dosage: AT NIGHT
     Dates: start: 2013
  6. NEXIUM [Concomitant]
     Active Substance: ESOMEPRAZOLE MAGNESIUM
     Indication: GASTRITIS
     Dosage: WHEN HER STOMACH ATTACKS
  7. ADERA D3 [Concomitant]
     Indication: PRODUCT USED FOR UNKNOWN INDICATION
     Dosage: DAILY DOSE: 1 TABLET; DOSAGE: AT LUNCH

REACTIONS (10)
  - Fall [Not Recovered/Not Resolved]
  - Dizziness [Unknown]
  - Labyrinthitis [Recovered/Resolved]
  - Cardiac disorder [Not Recovered/Not Resolved]
  - Pain [Recovering/Resolving]
  - Dyspnoea [Recovering/Resolving]
  - Bursitis [Recovered/Resolved]
  - Tendon rupture [Unknown]
  - Glucose tolerance impaired [Not Recovered/Not Resolved]
  - Weight decreased [Not Recovered/Not Resolved]

NARRATIVE: CASE EVENT DATE: 2014
